FAERS Safety Report 10963621 (Version 2)
Quarter: 2015Q2

REPORT INFORMATION
  Report Type: Spontaneous
  Country: DE (occurrence: DE)
  Receive Date: 20150328
  Receipt Date: 20150409
  Transmission Date: 20150821
  Serious: Yes (Hospitalization, Other)
  Sender: FDA-Public Use
  Company Number: DE-BIOGENIDEC-2015BI038148

PATIENT
  Age: 46 Year
  Sex: Female
  Weight: 117 kg

DRUGS (11)
  1. VENLAFAXIN [Concomitant]
     Active Substance: VENLAFAXINE HYDROCHLORIDE
  2. BELOC ZOK MITE [Concomitant]
     Active Substance: METOPROLOL SUCCINATE
  3. METOPROLOL [Concomitant]
     Active Substance: METOPROLOL
  4. TYSABRI [Suspect]
     Active Substance: NATALIZUMAB
     Indication: MULTIPLE SCLEROSIS
     Route: 042
     Dates: start: 2010
  5. RAMIPRIL. [Concomitant]
     Active Substance: RAMIPRIL
     Indication: HYPERTENSION
     Dates: start: 20150226
  6. SPIRINOLACTON [Concomitant]
  7. BACLOFEN. [Concomitant]
     Active Substance: BACLOFEN
  8. SORTIS [Concomitant]
     Active Substance: ATORVASTATIN
  9. TORASEMID [Concomitant]
     Active Substance: TORSEMIDE
  10. TYSABRI [Suspect]
     Active Substance: NATALIZUMAB
     Indication: MULTIPLE SCLEROSIS
     Route: 042
     Dates: start: 20140102
  11. CLEXANE [Concomitant]
     Active Substance: ENOXAPARIN SODIUM
     Route: 058

REACTIONS (3)
  - Viral infection [Unknown]
  - Coronary artery stenosis [Unknown]
  - Ischaemic cardiomyopathy [Unknown]
